FAERS Safety Report 18419982 (Version 1)
Quarter: 2020Q4

REPORT INFORMATION
  Report Type: Spontaneous
  Country: GB (occurrence: GB)
  Receive Date: 20201023
  Receipt Date: 20201023
  Transmission Date: 20210114
  Serious: Yes (Other)
  Sender: FDA-Public Use
  Company Number: GB-AUROBINDO-AUR-APL-2016-00766

PATIENT
  Age: 52 Year
  Sex: Female

DRUGS (2)
  1. TAMOXIFEN [Suspect]
     Active Substance: TAMOXIFEN
     Dosage: 20 MILLIGRAM, ONCE A DAY, (AT THE TIME OF PRESENTATION)
     Route: 065
     Dates: start: 20090519, end: 201502
  2. TAMOXIFEN [Suspect]
     Active Substance: TAMOXIFEN
     Indication: PROPHYLAXIS
     Dosage: 20 MILLIGRAM, DAILY, (AT THE TIME OF PRESENTATION)
     Route: 065
     Dates: start: 20090519, end: 20150201

REACTIONS (2)
  - Retinopathy [Recovered/Resolved]
  - Ocular toxicity [Recovering/Resolving]

NARRATIVE: CASE EVENT DATE: 20141201
